FAERS Safety Report 8163698-0 (Version None)
Quarter: 2012Q1

REPORT INFORMATION
  Report Type: 
  Country: None (occurrence: None)
  Receive Date: 20120224
  Receipt Date: 20120210
  Transmission Date: 20120608
  Serious: Yes (Other)
  Sender: FDA-Public Use
  Company Number: PHHY2012JP013729

PATIENT
  Sex: Female

DRUGS (2)
  1. FEMARA [Suspect]
     Indication: BREAST CANCER
     Route: 048
  2. RESVERATROL [Concomitant]

REACTIONS (2)
  - POST PROCEDURAL HAEMORRHAGE [None]
  - SWELLING [None]
